FAERS Safety Report 6271907-8 (Version None)
Quarter: 2009Q3

REPORT INFORMATION
  Report Type: 
  Country: None (occurrence: None)
  Receive Date: 20090717
  Receipt Date: 20090706
  Transmission Date: 20100115
  Serious: Yes (Hospitalization)
  Sender: FDA-Public Use
  Company Number: FR-ASTRAZENECA-2009SE04099

PATIENT
  Age: 42 Year
  Sex: Female

DRUGS (8)
  1. DIPRIVAN 2% [Suspect]
     Indication: SEDATION
     Route: 042
     Dates: start: 20080629, end: 20080629
  2. KETAMINE PANPHARMA [Concomitant]
     Route: 042
  3. MORPHINE AGUETTANT [Concomitant]
  4. ACUPAN [Concomitant]
  5. TRANXENE [Concomitant]
  6. ACTRAPID [Concomitant]
  7. NORADRENALINE RENAUDIN [Concomitant]
  8. POTASSIUM CHLORIDE [Concomitant]

REACTIONS (1)
  - LUNG DISORDER [None]
